FAERS Safety Report 23358728 (Version 1)
Quarter: 2024Q1

REPORT INFORMATION
  Report Type: Spontaneous
  Country: US (occurrence: None)
  Receive Date: 20240101
  Receipt Date: 20240101
  Transmission Date: 20240410
  Serious: No
  Sender: FDA-Public Use
  Company Number: None

PATIENT

DRUGS (1)
  1. CIPROFLOXACIN [Suspect]
     Active Substance: CIPROFLOXACIN

REACTIONS (4)
  - Nerve injury [None]
  - Tendon disorder [None]
  - Tendon pain [None]
  - Contraindicated product administered [None]

NARRATIVE: CASE EVENT DATE: 20230508
